FAERS Safety Report 9733529 (Version 1)
Quarter: 2013Q4

REPORT INFORMATION
  Report Type: Spontaneous
  Country: US (occurrence: US)
  Receive Date: 20131205
  Receipt Date: 20131205
  Transmission Date: 20140711
  Serious: No
  Sender: FDA-Public Use
  Company Number: US-PFIZER INC-2013347686

PATIENT
  Age: 83 Year
  Sex: Female
  Weight: 81.63 kg

DRUGS (8)
  1. LYRICA [Suspect]
     Indication: HERPES ZOSTER
     Dosage: 01 DF, 2X/DAY
     Dates: start: 201308
  2. LYRICA [Suspect]
     Dosage: 2 DF, 2X/DAY
  3. LYRICA [Suspect]
     Dosage: 1 DF, 2X/DAY
  4. LYRICA [Suspect]
     Dosage: UNK
     Dates: end: 201310
  5. SPIRONOLACTONE [Suspect]
     Indication: BLOOD PRESSURE ABNORMAL
     Dosage: 25 MG, DAILY
  6. PRAVASTATIN [Concomitant]
     Indication: BLOOD CHOLESTEROL ABNORMAL
     Dosage: 40 MG, DAILY
  7. EVISTA [Concomitant]
     Indication: BONE DISORDER
     Dosage: 60 MG, DAILY
  8. SYNTHROID [Concomitant]
     Indication: THYROID DISORDER
     Dosage: 100 MG, DAILY

REACTIONS (5)
  - Local swelling [Not Recovered/Not Resolved]
  - Blister [Not Recovered/Not Resolved]
  - Pain [Not Recovered/Not Resolved]
  - Hypoaesthesia [Not Recovered/Not Resolved]
  - Blood pressure decreased [Unknown]
